FAERS Safety Report 9541440 (Version 2)
Quarter: 2013Q4

REPORT INFORMATION
  Report Type: Report from Study
  Country: ES (occurrence: ES)
  Receive Date: 20130923
  Receipt Date: 20131001
  Transmission Date: 20140711
  Serious: Yes (Death)
  Sender: FDA-Public Use
  Company Number: ES-CELGENEUS-144-21880-13092268

PATIENT
  Age: 87 Year
  Sex: Male
  Weight: 87 kg

DRUGS (20)
  1. REVLIMID [Suspect]
     Indication: PLASMA CELL MYELOMA
     Dosage: 25 MILLIGRAM
     Route: 048
     Dates: start: 20120228, end: 20120319
  2. REVLIMID [Suspect]
     Dosage: 15 MILLIGRAM
     Route: 048
     Dates: start: 20120716, end: 20120805
  3. REVLIMID [Suspect]
     Dosage: 15 MILLIGRAM
     Route: 048
     Dates: start: 20130620, end: 20130703
  4. REVLIMID [Suspect]
     Dosage: 10 MILLIGRAM
     Route: 048
     Dates: start: 20130814, end: 20130831
  5. CARFILZOMIB [Suspect]
     Indication: PLASMA CELL MYELOMA
     Dosage: 38.2 MILLIGRAM
     Route: 065
     Dates: start: 20120228, end: 20120229
  6. CARFILZOMIB [Suspect]
     Dosage: 51.57 MILLIGRAM
     Route: 065
     Dates: start: 20120305, end: 20120313
  7. CARFILZOMIB [Suspect]
     Dosage: 51.57 MILLIGRAM
     Route: 065
     Dates: start: 20120618, end: 20120619
  8. CARFILZOMIB [Suspect]
     Dosage: 37.8 MILLIGRAM
     Route: 065
     Dates: start: 20120716, end: 20120801
  9. CARFILZOMIB [Suspect]
     Dosage: 37.8 MILLIGRAM
     Route: 065
     Dates: start: 20120716, end: 20120801
  10. CARFILZOMIB [Suspect]
     Dosage: 37.73 MILLIGRAM
     Route: 065
     Dates: start: 20130523, end: 20130524
  11. CARFILZOMIB [Suspect]
     Dosage: 37.8 MILLIGRAM
     Route: 065
     Dates: start: 20130606, end: 20130607
  12. CARFILZOMIB [Suspect]
     Dosage: 37.8 MILLIGRAM
     Route: 065
     Dates: start: 20130620, end: 20130621
  13. DEXAMETHASONE [Suspect]
     Indication: PLASMA CELL MYELOMA
     Dosage: 40 MILLIGRAM
     Route: 065
     Dates: start: 20120228, end: 20120319
  14. DEXAMETHASONE [Suspect]
     Dosage: 40 MILLIGRAM
     Route: 065
     Dates: start: 20130620, end: 20130711
  15. DEXAMETHASONE [Suspect]
     Dosage: 40 MILLIGRAM
     Route: 065
     Dates: start: 20130814, end: 20130828
  16. ACICLOVIR [Concomitant]
     Indication: ANTIVIRAL PROPHYLAXIS
     Dosage: 800 MILLIGRAM
     Route: 048
     Dates: start: 20120228
  17. AMLODIPINE [Concomitant]
     Indication: HYPERTENSION
     Dosage: 5 MICROGRAM
     Route: 048
  18. CLEXANE [Concomitant]
     Indication: ANTICOAGULANT THERAPY
     Dosage: 120 MILLIGRAM
     Route: 058
     Dates: start: 20130423
  19. NATECAL [Concomitant]
     Indication: HYPOCALCAEMIA
     Dosage: 3600 MILLIGRAM
     Route: 048
     Dates: start: 20130213
  20. OMEPRAZOLE [Concomitant]
     Indication: PRODUCT USED FOR UNKNOWN INDICATION
     Dosage: 20 MILLIGRAM
     Route: 048
     Dates: start: 20130502

REACTIONS (1)
  - Death [Fatal]
